FAERS Safety Report 5551928-0 (Version None)
Quarter: 2007Q4

REPORT INFORMATION
  Report Type: 
  Country: None (occurrence: None)
  Receive Date: 20071212
  Receipt Date: 20070604
  Transmission Date: 20080405
  Serious: No
  Sender: FDA-Public Use
  Company Number: US-AMGEN-KDL227772

PATIENT
  Sex: Female

DRUGS (1)
  1. ENBREL [Suspect]
     Indication: PSORIATIC ARTHROPATHY
     Dates: start: 20070506

REACTIONS (4)
  - CHEST DISCOMFORT [None]
  - COLD SWEAT [None]
  - DIZZINESS [None]
  - DYSPNOEA [None]
